FAERS Safety Report 5765887-9 (Version None)
Quarter: 2008Q2

REPORT INFORMATION
  Report Type: 
  Country: None (occurrence: None)
  Receive Date: 20080611
  Receipt Date: 20080604
  Transmission Date: 20081010
  Serious: Yes (Other)
  Sender: FDA-Public Use
  Company Number: US-PFIZER INC-2008031185

PATIENT
  Sex: Female
  Weight: 68 kg

DRUGS (1)
  1. NORVASC [Suspect]
     Indication: HYPERTENSION
     Route: 048
     Dates: start: 20071001

REACTIONS (2)
  - EYE HAEMORRHAGE [None]
  - THYROID DISORDER [None]
